FAERS Safety Report 5135935-8 (Version None)
Quarter: 2006Q4

REPORT INFORMATION
  Report Type: 
  Country: None (occurrence: None)
  Receive Date: 20061019
  Receipt Date: 20061016
  Transmission Date: 20070319
  Serious: Yes (Life-Threatening, Hospitalization)
  Sender: FDA-Public Use
  Company Number: HQWYE337609SEP05

PATIENT
  Age: 43 Year
  Sex: Male

DRUGS (14)
  1. RAPAMUNE [Suspect]
     Indication: PROPHYLAXIS AGAINST TRANSPLANT REJECTION
     Dosage: 5 MG 1X PER 1 DAY ORAL
     Route: 048
     Dates: start: 20050723, end: 20050912
  2. FLUINDIONE (FLUINDIONE, ) [Suspect]
     Indication: ANTICOAGULANT THERAPY
  3. LOVENOX [Suspect]
     Indication: ANTICOAGULANT THERAPY
     Dates: start: 20050817, end: 20050921
  4. BACTRIM [Concomitant]
  5. INEXIUM (ESOMEPRAZOLE) [Concomitant]
  6. SPECIAFOLDINE (FOLIC ACID) [Concomitant]
  7. CYANOCOBALAMIN [Concomitant]
  8. MYCOPHENOLATE MOFETIL [Concomitant]
  9. ZENAPAX [Concomitant]
  10. CYCLOSPORINE [Concomitant]
  11. PREDNISONE TAB [Concomitant]
  12. SOLU-MEDROL [Concomitant]
  13. CORTICOSTEROID NOS (CORTICOSTEROID NOS) [Concomitant]
  14. METOPROLOL TARTRATE [Concomitant]

REACTIONS (4)
  - ANGINA PECTORIS [None]
  - CARDIAC FLUTTER [None]
  - HAEMORRHAGIC STROKE [None]
  - MYOCARDIAL ISCHAEMIA [None]
